FAERS Safety Report 15290809 (Version 3)
Quarter: 2018Q4

REPORT INFORMATION
  Report Type: Spontaneous
  Country: US (occurrence: US)
  Receive Date: 20180817
  Receipt Date: 20181002
  Transmission Date: 20190204
  Serious: Yes (Hospitalization, Other)
  Sender: FDA-Public Use
  Company Number: US-PFIZER INC-2018329366

PATIENT
  Age: 54 Year
  Sex: Male
  Weight: 98 kg

DRUGS (2)
  1. CHANTIX [Suspect]
     Active Substance: VARENICLINE TARTRATE
     Indication: SMOKING CESSATION THERAPY
     Dosage: 0.5 MG, UNK
     Route: 048
     Dates: start: 2012
  2. CHANTIX [Suspect]
     Active Substance: VARENICLINE TARTRATE
     Dosage: UNK
     Route: 048
     Dates: start: 201610

REACTIONS (9)
  - Facial paralysis [Recovered/Resolved]
  - Speech disorder [Recovered/Resolved]
  - Blood pressure increased [Recovered/Resolved]
  - Hallucination [Unknown]
  - Eyelid ptosis [Recovered/Resolved]
  - Angina pectoris [Unknown]
  - Limb discomfort [Recovered/Resolved]
  - Abnormal behaviour [Unknown]
  - Feeling abnormal [Recovered/Resolved]

NARRATIVE: CASE EVENT DATE: 201210
